FAERS Safety Report 19055940 (Version 1)
Quarter: 2021Q1

REPORT INFORMATION
  Report Type: Spontaneous
  Country: DZ (occurrence: DZ)
  Receive Date: 20210325
  Receipt Date: 20210325
  Transmission Date: 20210420
  Serious: Yes (Death, Other)
  Sender: FDA-Public Use
  Company Number: DZ-SA-2021SA099988

PATIENT
  Age: 7 Year
  Sex: Female
  Weight: 90 kg

DRUGS (1)
  1. ALDURAZYME [Suspect]
     Active Substance: LARONIDASE
     Indication: MUCOPOLYSACCHARIDOSIS I

REACTIONS (1)
  - Apnoea [Fatal]

NARRATIVE: CASE EVENT DATE: 20210208
